FAERS Safety Report 5357180-3 (Version None)
Quarter: 2007Q2

REPORT INFORMATION
  Report Type: 
  Country: None (occurrence: None)
  Receive Date: 20070614
  Receipt Date: 20070531
  Transmission Date: 20071010
  Serious: Yes (Other)
  Sender: FDA-Public Use
  Company Number: US-JNJFOC-20070600626

PATIENT
  Sex: Male

DRUGS (3)
  1. PARAFON FORTE [Suspect]
     Indication: MUSCLE STRAIN
     Dosage: 2-3 TABLETS DAILY
     Route: 048
  2. COUMADIN [Concomitant]
     Indication: ANTICOAGULANT THERAPY
     Route: 065
  3. ALLOPURINOL [Concomitant]
     Indication: GOUT
     Route: 065

REACTIONS (1)
  - INTERNATIONAL NORMALISED RATIO INCREASED [None]
